FAERS Safety Report 5470677-0 (Version None)
Quarter: 2007Q3

REPORT INFORMATION
  Report Type: 
  Country: None (occurrence: None)
  Receive Date: 20070925
  Receipt Date: 20070910
  Transmission Date: 20080115
  Serious: Yes (Hospitalization)
  Sender: FDA-Public Use
  Company Number: AU-1164089

PATIENT
  Age: 85 Year
  Sex: Female

DRUGS (3)
  1. TRAVATAN [Suspect]
     Route: 047
  2. ACE INHIBITOR NOS [Concomitant]
  3. LOSEC (OMEPRAZOLE MAGNESIUM) [Concomitant]

REACTIONS (2)
  - ANGIOEDEMA [None]
  - HYPERSENSITIVITY [None]
